FAERS Safety Report 21019124 (Version 1)
Quarter: 2022Q2

REPORT INFORMATION
  Report Type: Report from Study
  Country: US (occurrence: US)
  Receive Date: 20220628
  Receipt Date: 20220628
  Transmission Date: 20220721
  Serious: Yes (Other)
  Sender: FDA-Public Use
  Company Number: US-JAZZ-2022-US-005890

PATIENT
  Sex: Female

DRUGS (6)
  1. XYREM [Suspect]
     Active Substance: SODIUM OXYBATE
     Indication: Narcolepsy
     Dosage: 2.5 GRAM, BID
     Route: 048
     Dates: start: 201106, end: 202104
  2. XYREM [Suspect]
     Active Substance: SODIUM OXYBATE
     Indication: Cataplexy
     Dosage: DOSE ADJUSTMENT
     Route: 048
     Dates: start: 201306, end: 201808
  3. XYREM [Suspect]
     Active Substance: SODIUM OXYBATE
     Indication: Somnolence
     Dosage: 4.5 GRAM
     Route: 048
     Dates: start: 201809
  4. ESTRACE [Concomitant]
     Active Substance: ESTRADIOL
     Dosage: 0000
     Dates: start: 20160112
  5. CELECOXIB [Concomitant]
     Active Substance: CELECOXIB
     Dosage: 0000
     Dates: start: 20180328
  6. NURTEC ODT [Concomitant]
     Active Substance: RIMEGEPANT SULFATE
     Dosage: 0000
     Dates: start: 20210301

REACTIONS (6)
  - Drug dependence [Unknown]
  - Migraine [Unknown]
  - Abdominal discomfort [Unknown]
  - Nausea [Unknown]
  - Anxiety [Unknown]
  - Product administration interrupted [Unknown]
